FAERS Safety Report 9526615 (Version 1)
Quarter: 2013Q3

REPORT INFORMATION
  Report Type: Spontaneous
  Country: AU (occurrence: AU)
  Receive Date: 20130916
  Receipt Date: 20130916
  Transmission Date: 20140515
  Serious: Yes (Hospitalization)
  Sender: FDA-Public Use
  Company Number: PHHY2013AU099126

PATIENT
  Age: 68 Year
  Sex: Male

DRUGS (11)
  1. BORTEZOMIB [Suspect]
     Indication: CYTOMEGALOVIRUS INFECTION
  2. DEXAMETHASONE [Suspect]
     Indication: PLASMA CELL MYELOMA
     Dosage: 20 MG ONCE WEEKLY FOR 4 INDUCTION CY
  3. LENALIDOMIDE [Suspect]
     Dosage: 15 MG DAILY FOR 21 DAYS IN A 28-DAY CYCLE (D1-21 Q28)
  4. LENALIDOMIDE [Suspect]
     Dosage: 25 MG D1-21 Q28 ON DAY 28 POST AUTOSCT
  5. CYCLOPHOSPHAMIDE [Concomitant]
     Dosage: 4000 MG/M2, (4 G/M2 )
  6. G-CSF [Concomitant]
     Dosage: 0.01 MG/KG, (10 MCG/KG )
  7. MELPHALAN [Concomitant]
     Dosage: 200 MG/M2, UNK
  8. VALACICLOVIR [Concomitant]
     Dosage: 500 MG, UNK
  9. TRIMETHOPRIM SULFAMETHOXAZOLE [Concomitant]
     Dosage: 1 DF, UNK
  10. ATOVAQUONE [Concomitant]
     Indication: PNEUMOCYSTIS JIROVECII PNEUMONIA
  11. THALIDOMIDE [Concomitant]
     Indication: CYTOMEGALOVIRUS CHORIORETINITIS

REACTIONS (6)
  - Autonomic neuropathy [Recovering/Resolving]
  - Cytomegalovirus chorioretinitis [Recovering/Resolving]
  - Plasma cell myeloma [Recovering/Resolving]
  - Visual acuity reduced [Not Recovered/Not Resolved]
  - Ocular discomfort [Recovering/Resolving]
  - Cytomegalovirus infection [Recovering/Resolving]
